FAERS Safety Report 9647262 (Version 1)
Quarter: 2013Q4

REPORT INFORMATION
  Report Type: Spontaneous
  Country: US (occurrence: US)
  Receive Date: 20131027
  Receipt Date: 20131027
  Transmission Date: 20140711
  Serious: Yes (Other)
  Sender: FDA-Public Use
  Company Number: US-NAPPMUNDI-USA-2013-0107141

PATIENT
  Age: 31 Year
  Sex: Female

DRUGS (3)
  1. OXYCODONE HYDROCHLORIDE (SIMILAR TO NDA 22-272) [Suspect]
     Indication: DRUG ABUSE
     Route: 048
  2. OXYMORPHONE [Suspect]
     Indication: DRUG ABUSE
     Route: 065
  3. XANAX [Suspect]
     Indication: DRUG ABUSE
     Route: 048

REACTIONS (5)
  - Drug abuse [Unknown]
  - Impaired driving ability [Unknown]
  - Somnolence [Unknown]
  - Coordination abnormal [Unknown]
  - Dysarthria [Unknown]
